FAERS Safety Report 5301082-5 (Version None)
Quarter: 2007Q2

REPORT INFORMATION
  Report Type: 
  Country: None (occurrence: None)
  Receive Date: 20070418
  Receipt Date: 20070405
  Transmission Date: 20071010
  Serious: Yes (Other)
  Sender: FDA-Public Use
  Company Number: FR-ELI_LILLY_AND_COMPANY-FR200703005644

PATIENT
  Sex: Female
  Weight: 68 kg

DRUGS (5)
  1. FORTEO [Suspect]
     Indication: OSTEOPOROTIC FRACTURE
     Dosage: 20 UG, DAILY (1/D)
     Route: 058
     Dates: start: 20060802
  2. TANAKAN [Concomitant]
     Indication: MEMORY IMPAIRMENT
     Dosage: 40 MG, 3/D
     Route: 048
     Dates: start: 20020101
  3. TENORETIC 100 [Concomitant]
     Indication: HYPERTENSION
     Dosage: 50 MG, DAILY (1/D)
     Route: 048
     Dates: start: 20060501
  4. PARACETAMOL [Concomitant]
     Indication: PAIN
     Dosage: 500 MG, OTHER
     Route: 048
     Dates: start: 20020101
  5. OROCAL D(3) [Concomitant]
     Indication: OSTEOPOROSIS
     Dosage: 500 MG, DAILY (1/D)
     Route: 048
     Dates: start: 20020101

REACTIONS (4)
  - ANAEMIA [None]
  - ASTHENIA [None]
  - NAUSEA [None]
  - NEUTROPENIA [None]
